FAERS Safety Report 8909994 (Version 1)
Quarter: 2012Q4

REPORT INFORMATION
  Report Type: 
  Country: US (occurrence: US)
  Receive Date: 20121115
  Receipt Date: 20121115
  Transmission Date: 20130627
  Serious: No
  Sender: FDA-Public Use
  Company Number: US-PFIZER INC-2012285600

PATIENT
  Age: 34 Year
  Sex: Female
  Weight: 56.69 kg

DRUGS (3)
  1. LYRICA [Suspect]
     Indication: NECK PAIN
     Dosage: 75 mg, 3x/day
     Dates: end: 201210
  2. LISINOPRIL [Concomitant]
     Indication: BLOOD PRESSURE HIGH
     Dosage: 40 mg, 2x/day
  3. ESTRADIOL [Concomitant]
     Indication: SURGICAL MENOPAUSE
     Dosage: 2 mg, daily

REACTIONS (1)
  - Nasopharyngitis [Not Recovered/Not Resolved]
